FAERS Safety Report 19710733 (Version 1)
Quarter: 2021Q3

REPORT INFORMATION
  Report Type: Spontaneous
  Country: US (occurrence: US)
  Receive Date: 20210817
  Receipt Date: 20210817
  Transmission Date: 20211014
  Serious: No
  Sender: FDA-Public Use
  Company Number: US-INCYTE CORPORATION-2021IN007133

PATIENT

DRUGS (1)
  1. JAKAFI [Suspect]
     Active Substance: RUXOLITINIB
     Dosage: 20 MILLIGRAM, QD (OTHER)
     Route: 048
     Dates: start: 20210301

REACTIONS (2)
  - Anal erythema [Unknown]
  - Skin abrasion [Unknown]

NARRATIVE: CASE EVENT DATE: 20210730
